FAERS Safety Report 21935682 (Version 1)
Quarter: 2023Q1

REPORT INFORMATION
  Report Type: Spontaneous
  Country: FR (occurrence: FR)
  Receive Date: 20230201
  Receipt Date: 20230201
  Transmission Date: 20230418
  Serious: Yes (Hospitalization)
  Sender: FDA-Public Use
  Company Number: None

PATIENT
  Age: 88 Year
  Sex: Female

DRUGS (5)
  1. CLONAZEPAM [Suspect]
     Active Substance: CLONAZEPAM
     Indication: Neuralgia
     Dosage: DAILY DOSE: 15 DROP
     Route: 048
     Dates: end: 20230105
  2. KARDEGIC [Concomitant]
     Active Substance: ASPIRIN DL-LYSINE
     Dosage: POWDER FOR DRINKABLE SOLUTION IN SACHET/1 SACHET PER DAY?DAILY DOSE: 75 MILLIGRAM
     Route: 048
  3. RAMIPRIL [Concomitant]
     Active Substance: RAMIPRIL
     Dosage: DAILY DOSE: 1 DOSAGE FORM
     Route: 048
  4. Trimbutine [Concomitant]
     Dosage: 100 MG: 1 TO 2 CP PER DAY
     Route: 048
  5. Transipeg [Concomitant]
     Dosage: POWDER FOR? ORAL SOLUTION IN SACHET
     Route: 048

REACTIONS (3)
  - Coma [Recovered/Resolved]
  - Toxicity to various agents [Recovered/Resolved]
  - Product use in unapproved indication [Recovered/Resolved]

NARRATIVE: CASE EVENT DATE: 20230105
